FAERS Safety Report 15454859 (Version 2)
Quarter: 2018Q4

REPORT INFORMATION
  Report Type: Spontaneous
  Country: US (occurrence: US)
  Receive Date: 20181002
  Receipt Date: 20181024
  Transmission Date: 20190204
  Serious: No
  Sender: FDA-Public Use
  Company Number: US-AMGEN-USASP2018134973

PATIENT
  Age: 77 Year
  Sex: Female
  Weight: 71.88 kg

DRUGS (2)
  1. NEULASTA [Suspect]
     Active Substance: PEGFILGRASTIM
     Indication: PRODUCT USED FOR UNKNOWN INDICATION
     Dosage: UNK
     Route: 065
     Dates: start: 20180831
  2. NEULASTA [Suspect]
     Active Substance: PEGFILGRASTIM
     Dosage: 3 MUG, UNK
     Route: 065

REACTIONS (2)
  - Neutrophil count abnormal [Recovered/Resolved]
  - Product dose omission [Unknown]

NARRATIVE: CASE EVENT DATE: 20180831
